FAERS Safety Report 7393072-6 (Version None)
Quarter: 2011Q2

REPORT INFORMATION
  Report Type: 
  Country: None (occurrence: None)
  Receive Date: 20110404
  Receipt Date: 20110324
  Transmission Date: 20111010
  Serious: Yes (Hospitalization)
  Sender: FDA-Public Use
  Company Number: IT-BAXTER-2011BH007637

PATIENT
  Age: 49 Year
  Sex: Male

DRUGS (8)
  1. ASPIRIN [Concomitant]
     Indication: MYOCARDIAL ISCHAEMIA
     Route: 048
     Dates: start: 20070904, end: 20110316
  2. ENAPREN [Concomitant]
     Indication: HYPERTENSION
     Route: 048
     Dates: start: 20101001, end: 20110316
  3. FERRO-GRAD [Concomitant]
     Indication: MINERAL SUPPLEMENTATION
     Route: 048
     Dates: start: 20030515, end: 20110316
  4. TORVAST [Concomitant]
     Indication: MYOCARDIAL ISCHAEMIA
     Route: 048
     Dates: start: 20110117, end: 20110316
  5. PERITONEAL DIALYSIS SOLUTION [Concomitant]
     Indication: PRODUCT USED FOR UNKNOWN INDICATION
     Dates: start: 20020501
  6. IPERTEN [Concomitant]
     Indication: HYPERTENSION
     Route: 048
     Dates: start: 20110125, end: 20110316
  7. DIANEAL [Suspect]
     Indication: PERITONEAL DIALYSIS
     Route: 033
  8. PLAVIX [Concomitant]
     Indication: MYOCARDIAL ISCHAEMIA
     Route: 048
     Dates: start: 20110117, end: 20110316

REACTIONS (4)
  - PERITONITIS BACTERIAL [None]
  - DIARRHOEA [None]
  - NAUSEA [None]
  - VOMITING [None]
